FAERS Safety Report 11377365 (Version 2)
Quarter: 2015Q3

REPORT INFORMATION
  Report Type: Spontaneous
  Country: US (occurrence: US)
  Receive Date: 20150811
  Receipt Date: 20150903
  Transmission Date: 20151125
  Serious: No
  Sender: FDA-Public Use
  Company Number: US-ELI_LILLY_AND_COMPANY-US200811003983

PATIENT
  Sex: Female

DRUGS (3)
  1. HUMULIN U [Suspect]
     Active Substance: INSULIN HUMAN
  2. HUMULIN L [Suspect]
     Active Substance: INSULIN HUMAN
  3. HUMALOG [Suspect]
     Active Substance: INSULIN LISPRO
     Route: 058

REACTIONS (4)
  - Blood glucose increased [Unknown]
  - Blood glucose decreased [Recovered/Resolved]
  - Adverse drug reaction [Recovered/Resolved]
  - Gluten sensitivity [Unknown]

NARRATIVE: CASE EVENT DATE: 20081027
